FAERS Safety Report 17396417 (Version 6)
Quarter: 2021Q4

REPORT INFORMATION
  Report Type: Spontaneous
  Country: US (occurrence: US)
  Receive Date: 20200210
  Receipt Date: 20211229
  Transmission Date: 20220303
  Serious: Yes (Other)
  Sender: FDA-Public Use
  Company Number: US-SA-2020SA026423

PATIENT
  Age: 64 Year
  Sex: Female

DRUGS (3)
  1. DUPIXENT [Suspect]
     Active Substance: DUPILUMAB
     Indication: Dermatitis atopic
     Dosage: 600 MG, 1X
     Route: 058
     Dates: start: 201912, end: 201912
  2. DUPIXENT [Suspect]
     Active Substance: DUPILUMAB
     Dosage: 300 MG, QOW
     Route: 058
  3. STELARA [Concomitant]
     Active Substance: USTEKINUMAB

REACTIONS (9)
  - Myocardial infarction [Unknown]
  - Blood pressure abnormal [Unknown]
  - Hypoaesthesia [Unknown]
  - Migraine [Unknown]
  - Fall [Unknown]
  - Urticaria [Unknown]
  - Rash [Unknown]
  - Spinal operation [Unknown]
  - Dermatitis atopic [Unknown]

NARRATIVE: CASE EVENT DATE: 20191224
